FAERS Safety Report 9603568 (Version 1)
Quarter: 2013Q4

REPORT INFORMATION
  Report Type: Spontaneous
  Country: US (occurrence: US)
  Receive Date: 20131007
  Receipt Date: 20131007
  Transmission Date: 20140711
  Serious: No
  Sender: FDA-Public Use
  Company Number: US-PFIZER INC-2013283710

PATIENT
  Age: 70 Year
  Sex: Female
  Weight: 65.76 kg

DRUGS (4)
  1. LIPITOR [Suspect]
     Indication: BLOOD CHOLESTEROL INCREASED
     Dosage: UNK, 1X/DAY
  2. LIPITOR [Suspect]
     Dosage: 80 MG, DAILY
     Dates: end: 2013
  3. LIPITOR [Suspect]
     Dosage: 80 MG, ALTERNATE DAY
     Dates: start: 2013
  4. DIOVAN HCT [Concomitant]
     Indication: HYPERTENSION
     Dosage: 160/12.5 MG, DAILY

REACTIONS (5)
  - Arthralgia [Unknown]
  - Blood creatine phosphokinase increased [Unknown]
  - Tendonitis [Unknown]
  - Musculoskeletal pain [Not Recovered/Not Resolved]
  - Musculoskeletal pain [Unknown]
